FAERS Safety Report 6440936-3 (Version None)
Quarter: 2009Q4

REPORT INFORMATION
  Report Type: 
  Country: None (occurrence: None)
  Receive Date: 20091116
  Receipt Date: 20061108
  Transmission Date: 20100525
  Serious: Yes (Hospitalization, Disabling, Other)
  Sender: FDA-Public Use
  Company Number: US-ASTRAZENECA-2009SE25239

PATIENT
  Age: 51 Year
  Sex: Female

DRUGS (1)
  1. ROSUVASTATIN [Suspect]
     Route: 048
     Dates: start: 20040701, end: 20041201

REACTIONS (2)
  - MYASTHENIA GRAVIS [None]
  - MYASTHENIA GRAVIS CRISIS [None]
